FAERS Safety Report 8844310 (Version 1)
Quarter: 2012Q4

REPORT INFORMATION
  Report Type: 
  Country: US (occurrence: US)
  Receive Date: 20121017
  Receipt Date: 20121017
  Transmission Date: 20130627
  Serious: Yes (Other)
  Sender: FDA-Public Use
  Company Number: US-JNJFOC-20121005945

PATIENT
  Sex: Male
  Weight: 83.01 kg

DRUGS (8)
  1. REMICADE [Suspect]
     Indication: COLITIS ULCERATIVE
     Route: 042
     Dates: end: 2011
  2. REMICADE [Suspect]
     Indication: COLITIS ULCERATIVE
     Route: 042
     Dates: start: 2012
  3. REMICADE [Suspect]
     Indication: COLITIS ULCERATIVE
     Route: 042
     Dates: start: 2011, end: 2012
  4. CLARITIN [Concomitant]
     Indication: SEASONAL ALLERGY
     Route: 065
  5. TRAMADOL [Concomitant]
     Indication: PAIN
     Route: 048
     Dates: start: 20121002
  6. SULFASALAZINE [Concomitant]
     Indication: PROPHYLAXIS
     Route: 065
  7. ACETAMINOPHEN [Concomitant]
     Indication: PAIN
     Route: 065
  8. ASACOL [Concomitant]
     Indication: PROPHYLAXIS
     Route: 065
     Dates: start: 2010

REACTIONS (3)
  - Irritable bowel syndrome [Recovered/Resolved]
  - Colitis [Unknown]
  - Arthralgia [Not Recovered/Not Resolved]
